FAERS Safety Report 4552330-0 (Version None)
Quarter: 2005Q1

REPORT INFORMATION
  Report Type: 
  Country: None (occurrence: None)
  Receive Date: 20050112
  Receipt Date: 20050112
  Transmission Date: 20050727
  Serious: Yes (Death)
  Sender: FDA-Public Use
  Company Number: None

PATIENT
  Age: 74 Year
  Sex: Male
  Weight: 98 kg

DRUGS (10)
  1. COLCHICINE  0.5 MG/ML   BEDFORD [Suspect]
     Indication: GOUT
     Dosage: 2 MG ONCE INTRAVENOUS
     Route: 042
     Dates: start: 20040124, end: 20040124
  2. COLCHICINE  0.5 MG/ML   BEDFORD [Suspect]
     Indication: GOUT
     Dosage: 0.5 MG EVERY 6 HOURS  INTRAVENOUS
     Route: 042
     Dates: start: 20040124, end: 20040126
  3. LASIX [Concomitant]
  4. MORPHINE [Concomitant]
  5. COMBIVENT [Concomitant]
  6. FOLIC ACID [Concomitant]
  7. HEPARIN SQ [Concomitant]
  8. PROTONIX IV [Concomitant]
  9. NEUTRAPHOS [Concomitant]
  10. SPIRONOLACTONE [Concomitant]

REACTIONS (20)
  - ABDOMINAL DISTENSION [None]
  - ABDOMINAL PAIN [None]
  - ACIDOSIS [None]
  - BLOOD PRESSURE DECREASED [None]
  - BRADYCARDIA [None]
  - CARDIAC ARREST [None]
  - CARDIOTOXICITY [None]
  - COMA [None]
  - DYSPNOEA [None]
  - FATIGUE [None]
  - HAEMATOCRIT DECREASED [None]
  - HAEMOGLOBIN DECREASED [None]
  - LEUKOCYTOSIS [None]
  - NAUSEA [None]
  - OEDEMA [None]
  - PLATELET COUNT DECREASED [None]
  - RENAL IMPAIRMENT [None]
  - RESPIRATORY DISTRESS [None]
  - TRICUSPID VALVE INCOMPETENCE [None]
  - VOMITING [None]
